FAERS Safety Report 10264710 (Version 2)
Quarter: 2014Q3

REPORT INFORMATION
  Report Type: Report from Study
  Country: CN (occurrence: CN)
  Receive Date: 20140627
  Receipt Date: 20140709
  Transmission Date: 20150326
  Serious: Yes (Hospitalization)
  Sender: FDA-Public Use
  Company Number: CN-ASTELLAS-2014US007113

PATIENT
  Age: 48 Year
  Sex: Female

DRUGS (1)
  1. ERLOTINIB [Suspect]
     Active Substance: ERLOTINIB
     Indication: NON-SMALL CELL LUNG CANCER
     Route: 048
     Dates: start: 20130525

REACTIONS (3)
  - Ligament sprain [Unknown]
  - Foot fracture [Unknown]
  - Fall [Unknown]

NARRATIVE: CASE EVENT DATE: 201406
